FAERS Safety Report 8836664 (Version 1)
Quarter: 2012Q4

REPORT INFORMATION
  Report Type: Spontaneous
  Country: FR (occurrence: None)
  Receive Date: 20121010
  Receipt Date: 20121010
  Transmission Date: 20130627
  Serious: Yes (Other)
  Sender: FDA-Public Use
  Company Number: DSM-2012-01055

PATIENT
  Age: 69 Year
  Sex: Male
  Weight: 94 kg

DRUGS (3)
  1. OLMETEC HCT [Suspect]
     Indication: HYPERTENSION ARTERIAL
     Route: 048
     Dates: start: 200805, end: 201204
  2. OLMETEC [Suspect]
     Indication: HYPERTENSION ARTERIAL
     Route: 048
     Dates: start: 201204, end: 201207
  3. DIFFU-K (POTASSIUM CHLORIDE) (POTASSIUM CHLORIDE) [Concomitant]

REACTIONS (6)
  - Nausea [None]
  - Vomiting [None]
  - Diarrhoea [None]
  - Dehydration [None]
  - Hypokalaemia [None]
  - Atrial fibrillation [None]
